FAERS Safety Report 4654550-3 (Version None)
Quarter: 2005Q2

REPORT INFORMATION
  Report Type: 
  Country: None (occurrence: None)
  Receive Date: 20050404
  Receipt Date: 20050118
  Transmission Date: 20051028
  Serious: No
  Sender: FDA-Public Use
  Company Number: USA041285512

PATIENT
  Age: 44 Year
  Sex: Male
  Weight: 82 kg

DRUGS (1)
  1. CYMBALTA [Suspect]
     Dosage: 30 MG
     Dates: start: 20041112, end: 20041118

REACTIONS (4)
  - BLOOD PRESSURE INCREASED [None]
  - HYPERHIDROSIS [None]
  - NAUSEA [None]
  - SKIN DISCOLOURATION [None]
